FAERS Safety Report 8356045-2 (Version None)
Quarter: 2012Q2

REPORT INFORMATION
  Report Type: 
  Country: None (occurrence: None)
  Receive Date: 20120514
  Receipt Date: 20120503
  Transmission Date: 20120825
  Serious: Yes (Other)
  Sender: FDA-Public Use
  Company Number: ZA-NOVOPROD-351057

PATIENT
  Age: 68 Year
  Sex: Female
  Weight: 90 kg

DRUGS (5)
  1. CLONAZEPAM [Concomitant]
     Dosage: 2 MG, QD
  2. CRESTOR [Concomitant]
     Dosage: 10 MG, QD
  3. VICTOZA [Suspect]
     Indication: INSULIN RESISTANCE
     Dosage: 0.6 MG, QD
     Route: 058
     Dates: start: 20120412, end: 20120416
  4. TEGRETOL [Concomitant]
     Dosage: 400 MG, QD
     Route: 065
  5. RAMIPRIL [Concomitant]
     Dosage: 10 MG, QD

REACTIONS (2)
  - ABDOMINAL PAIN [None]
  - VOMITING [None]
